FAERS Safety Report 15396923 (Version 2)
Quarter: 2018Q4

REPORT INFORMATION
  Report Type: Spontaneous
  Country: ZA (occurrence: ZA)
  Receive Date: 20180918
  Receipt Date: 20181003
  Transmission Date: 20190204
  Serious: Yes (Other)
  Sender: FDA-Public Use
  Company Number: ZA-PFIZER INC-2018374843

PATIENT
  Age: 56 Year
  Sex: Male

DRUGS (9)
  1. THIAMINE. [Suspect]
     Active Substance: THIAMINE
     Dosage: 100 MG, UNK
  2. ASPAVOR [Suspect]
     Active Substance: ATORVASTATIN
     Dosage: 20 MG, UNK
  3. BETAPAM [Suspect]
     Active Substance: DIAZEPAM
     Dosage: 5 MG, UNK
  4. RIVOTRIL [Suspect]
     Active Substance: CLONAZEPAM
     Dosage: 0.5 MG, UNK
  5. WELLBUTRIN XL [Suspect]
     Active Substance: BUPROPION HYDROCHLORIDE
     Dosage: 300 MG, UNK
  6. ZYTOMIL [Suspect]
     Active Substance: ESCITALOPRAM OXALATE
     Dosage: 20 MG, UNK
  7. EPILIZINE CR [Suspect]
     Active Substance: VALPROATE SODIUM
     Dosage: 500 MG, UNK
  8. PURICOS [Suspect]
     Active Substance: ALLOPURINOL
     Dosage: 300 MG, UNK
  9. STILPANE [CAFFEINE;CODEINE PHOSPHATE;MEPROBAMATE;PARACETAMOL] [Suspect]
     Active Substance: ACETAMINOPHEN\CAFFEINE\CODEINE PHOSPHATE\MEPROBAMATE
     Dosage: UNK

REACTIONS (1)
  - Rib fracture [Recovering/Resolving]
